FAERS Safety Report 12529821 (Version 1)
Quarter: 2016Q3

REPORT INFORMATION
  Report Type: Spontaneous
  Country: US (occurrence: US)
  Receive Date: 20160706
  Receipt Date: 20160706
  Transmission Date: 20161109
  Serious: Yes (Other)
  Sender: FDA-Public Use
  Company Number: US-BRISTOL-MYERS SQUIBB COMPANY-BMS-2016-052444

PATIENT
  Sex: Female
  Weight: 108.84 kg

DRUGS (1)
  1. OPDIVO [Suspect]
     Active Substance: NIVOLUMAB
     Indication: NON-SMALL CELL LUNG CANCER
     Dosage: Q2WK
     Route: 042
     Dates: start: 20160516

REACTIONS (3)
  - Alopecia [Recovering/Resolving]
  - Off label use [Unknown]
  - Upper respiratory tract infection [Recovered/Resolved]
